FAERS Safety Report 25665830 (Version 2)
Quarter: 2025Q4

REPORT INFORMATION
  Report Type: Spontaneous
  Country: CA (occurrence: CA)
  Receive Date: 20250811
  Receipt Date: 20251006
  Transmission Date: 20260118
  Serious: Yes (Other)
  Sender: PFIZER
  Company Number: CA-PFIZER INC-202500159495

PATIENT
  Age: 26 Year
  Sex: Female

DRUGS (3)
  1. ABRILADA [Suspect]
     Active Substance: ADALIMUMAB-AFZB
     Indication: Hidradenitis
     Dosage: 40 MG, WEEKLY (W0 160MGW2 80MG)
     Route: 058
     Dates: start: 20230922
  2. ABRILADA [Suspect]
     Active Substance: ADALIMUMAB-AFZB
     Dosage: 40 MG, WEEKLY (W0 160MGW2 80MG)
     Route: 058
     Dates: start: 20250725
  3. ABRILADA [Suspect]
     Active Substance: ADALIMUMAB-AFZB
     Dosage: 40 MG, WEEKLY (W0 160MGW2 80MG)
     Route: 058
     Dates: start: 20250802

REACTIONS (2)
  - Gallbladder operation [Unknown]
  - Cyst [Unknown]
